FAERS Safety Report 5196537-0 (Version None)
Quarter: 2006Q4

REPORT INFORMATION
  Report Type: 
  Country: None (occurrence: None)
  Receive Date: 20061227
  Receipt Date: 20061204
  Transmission Date: 20070319
  Serious: Yes (Death)
  Sender: FDA-Public Use
  Company Number: L06-USA-04689-01

PATIENT
  Age: 59 Year
  Sex: Female

DRUGS (1)
  1. CITALOPRAM HYDROBROMIDE [Suspect]
     Indication: MAJOR DEPRESSION
     Dosage: 40 MG QD PO
     Route: 048
     Dates: start: 19900213, end: 19900702

REACTIONS (2)
  - COMPLETED SUICIDE [None]
  - INTENTIONAL SELF-INJURY [None]
